FAERS Safety Report 6076429-5 (Version None)
Quarter: 2009Q1

REPORT INFORMATION
  Report Type: 
  Country: None (occurrence: None)
  Receive Date: 20090213
  Receipt Date: 20090211
  Transmission Date: 20090719
  Serious: Yes (Hospitalization)
  Sender: FDA-Public Use
  Company Number: DE-JNJFOC-20081103583

PATIENT
  Sex: Female

DRUGS (3)
  1. DOXORUBICIN HCL [Suspect]
     Indication: UTERINE LEIOMYOSARCOMA
     Route: 042
  2. CARBOPLATIN [Suspect]
     Indication: UTERINE LEIOMYOSARCOMA
     Route: 065
  3. BISOPROLOL [Concomitant]
     Route: 048

REACTIONS (1)
  - DERMAL CYST [None]
